FAERS Safety Report 15040898 (Version 3)
Quarter: 2020Q2

REPORT INFORMATION
  Report Type: Not Available
  Country: US (occurrence: US)
  Receive Date: 20180620
  Receipt Date: 20200630
  Transmission Date: 20200713
  Serious: No
  Sender: FDA-Public Use
  Company Number: US-NEUROCRINE BIOSCIENCES INC.-2018NBI01781

PATIENT
  Age: 77 Year
  Sex: Male

DRUGS (2)
  1. INGREZZA [Suspect]
     Active Substance: VALBENAZINE
     Indication: TARDIVE DYSKINESIA
     Route: 048
     Dates: start: 20180307, end: 20180313
  2. INGREZZA [Suspect]
     Active Substance: VALBENAZINE
     Route: 048
     Dates: start: 20180314

REACTIONS (4)
  - Sedation [Unknown]
  - Somnolence [Unknown]
  - Drooling [Unknown]
  - Bradykinesia [Unknown]

NARRATIVE: CASE EVENT DATE: 2018
